FAERS Safety Report 8190054-1 (Version None)
Quarter: 2012Q1

REPORT INFORMATION
  Report Type: 
  Country: None (occurrence: None)
  Receive Date: 20120307
  Receipt Date: 20120229
  Transmission Date: 20120608
  Serious: Yes (Other)
  Sender: FDA-Public Use
  Company Number: MY-JNJFOC-20120300816

PATIENT
  Age: 31 Year
  Sex: Male

DRUGS (4)
  1. EFAVIRENZ [Concomitant]
     Route: 065
  2. LAMIVUDINE [Concomitant]
     Route: 065
  3. STAVUDINE [Concomitant]
     Route: 065
  4. SPORANOX [Suspect]
     Indication: PENICILLIOSIS
     Route: 048

REACTIONS (2)
  - PRURITUS [None]
  - FACE OEDEMA [None]
